FAERS Safety Report 16532643 (Version 1)
Quarter: 2019Q3

REPORT INFORMATION
  Report Type: Spontaneous
  Country: US (occurrence: US)
  Receive Date: 20190703
  Receipt Date: 20190703
  Transmission Date: 20191004
  Serious: Yes (Disabling)
  Sender: FDA-Public Use
  Company Number: None

PATIENT
  Age: 59 Year
  Sex: Female
  Weight: 66.6 kg

DRUGS (5)
  1. DULOXETINE. [Concomitant]
     Active Substance: DULOXETINE
  2. LEVOTHYROXINE. [Concomitant]
     Active Substance: LEVOTHYROXINE
  3. CIPRO [Suspect]
     Active Substance: CIPROFLOXACIN HYDROCHLORIDE
  4. LEVAQUIN [Suspect]
     Active Substance: LEVOFLOXACIN
  5. CALCIUM [Concomitant]
     Active Substance: CALCIUM

REACTIONS (9)
  - Paraesthesia [None]
  - White blood cell count decreased [None]
  - Mental disorder [None]
  - Burning sensation [None]
  - Muscle atrophy [None]
  - Injection [None]
  - Fascia release [None]
  - Muscle spasms [None]
  - Polyp [None]

NARRATIVE: CASE EVENT DATE: 20111101
